FAERS Safety Report 5628330-6 (Version None)
Quarter: 2008Q1

REPORT INFORMATION
  Report Type: 
  Country: None (occurrence: None)
  Receive Date: 20080215
  Receipt Date: 20080212
  Transmission Date: 20080703
  Serious: Yes (Other)
  Sender: FDA-Public Use
  Company Number: CN-BOEHRINGER INGELHEIM GMBH, GERMANY-2007-DE-00153GD

PATIENT
  Sex: Male

DRUGS (3)
  1. ASPIRIN [Suspect]
  2. DEXAMETHASONE TAB [Suspect]
     Indication: PROPHYLAXIS
  3. DEXAMETHASONE TAB [Suspect]
     Indication: MOUNTAIN SICKNESS ACUTE

REACTIONS (2)
  - GASTROINTESTINAL HAEMORRHAGE [None]
  - MELAENA [None]
